FAERS Safety Report 7479670-X (Version None)
Quarter: 2011Q2

REPORT INFORMATION
  Report Type: 
  Country: None (occurrence: None)
  Receive Date: 20110513
  Receipt Date: 20110504
  Transmission Date: 20111010
  Serious: Yes (Hospitalization)
  Sender: FDA-Public Use
  Company Number: US-ELI_LILLY_AND_COMPANY-US201105001601

PATIENT
  Sex: Female

DRUGS (1)
  1. ALIMTA [Suspect]
     Indication: RESPIRATORY TRACT NEOPLASM
     Dosage: 925 MG, UNKNOWN
     Route: 065
     Dates: start: 20110323

REACTIONS (2)
  - RESPIRATORY DISTRESS [None]
  - CELLULITIS [None]
